FAERS Safety Report 22616335 (Version 7)
Quarter: 2024Q2

REPORT INFORMATION
  Report Type: Spontaneous
  Country: US (occurrence: US)
  Receive Date: 20230619
  Receipt Date: 20240508
  Transmission Date: 20240716
  Serious: Yes (Other)
  Sender: FDA-Public Use
  Company Number: US-BRISTOL-MYERS SQUIBB COMPANY-2023-085628

PATIENT
  Age: 72 Year
  Sex: Male

DRUGS (2)
  1. REVLIMID [Suspect]
     Active Substance: LENALIDOMIDE
     Indication: Nephrogenic anaemia
     Dosage: TAKE 1 CAPSULE BY MOUTH 3 TIMES A WEEK FOR 3 WEEKS ON 1 WEEK OFF
     Route: 048
  2. REVLIMID [Suspect]
     Active Substance: LENALIDOMIDE
     Dosage: TAKE 1 CAPSULE BY MOUTH 3 TIMES A WEEK FOR 3 WEEKS ON 1 WEEK OFF
     Route: 048

REACTIONS (5)
  - Blood test abnormal [Not Recovered/Not Resolved]
  - Off label use [Unknown]
  - Product prescribing issue [Unknown]
  - Product dose omission issue [Unknown]
  - Fatigue [Not Recovered/Not Resolved]

NARRATIVE: CASE EVENT DATE: 20230611
